FAERS Safety Report 12321455 (Version 1)
Quarter: 2016Q2

REPORT INFORMATION
  Report Type: Spontaneous
  Country: US (occurrence: US)
  Receive Date: 20160502
  Receipt Date: 20160502
  Transmission Date: 20160815
  Serious: Yes (Congenital Anomaly, Other)
  Sender: FDA-Public Use
  Company Number: US-APOTEX-2016AP007929

PATIENT
  Sex: Male

DRUGS (1)
  1. PAXIL [Suspect]
     Active Substance: PAROXETINE HYDROCHLORIDE
     Indication: PRODUCT USED FOR UNKNOWN INDICATION
     Route: 064

REACTIONS (11)
  - Hydronephrosis [Unknown]
  - Congenital musculoskeletal anomaly [Unknown]
  - Dysmorphism [Unknown]
  - Pectus excavatum [Unknown]
  - Orchidopexy [Unknown]
  - Limb asymmetry [Unknown]
  - Foetal exposure during pregnancy [Unknown]
  - Atrial septal defect [Unknown]
  - Cardiac aneurysm [Unknown]
  - Genitalia external ambiguous [Unknown]
  - Congenital genitourinary abnormality [Unknown]

NARRATIVE: CASE EVENT DATE: 19970214
